FAERS Safety Report 22143031 (Version 2)
Quarter: 2023Q2

REPORT INFORMATION
  Report Type: Report from Study
  Country: US (occurrence: US)
  Receive Date: 20230327
  Receipt Date: 20230502
  Transmission Date: 20230722
  Serious: No
  Sender: FDA-Public Use
  Company Number: US-BIOVITRUM-2023US00335

PATIENT
  Age: 71 Year
  Sex: Male

DRUGS (1)
  1. DOPTELET [Suspect]
     Active Substance: AVATROMBOPAG MALEATE
     Indication: Immune thrombocytopenia
     Dosage: DAILY
     Route: 048
     Dates: start: 202207

REACTIONS (7)
  - Blood iron decreased [Unknown]
  - Haemoglobin decreased [Unknown]
  - Erythema [Unknown]
  - Dizziness [Unknown]
  - Sinusitis [Unknown]
  - Product dose omission issue [Unknown]
  - Adverse drug reaction [Unknown]
